FAERS Safety Report 5466992-7 (Version None)
Quarter: 2007Q3

REPORT INFORMATION
  Report Type: 
  Country: None (occurrence: None)
  Receive Date: 20070924
  Receipt Date: 20070924
  Transmission Date: 20080115
  Serious: No
  Sender: FDA-Public Use
  Company Number: None

PATIENT

DRUGS (2)
  1. OMEPRAZOLE [Suspect]
     Indication: DYSPEPSIA
     Dosage: 20MG ONCE A DAY PO
     Route: 048
     Dates: start: 20070621, end: 20070921
  2. OMEPRAZOLE [Suspect]
     Indication: GASTROOESOPHAGEAL REFLUX DISEASE
     Dosage: 20MG ONCE A DAY PO
     Route: 048
     Dates: start: 20070621, end: 20070921

REACTIONS (1)
  - DRUG INEFFECTIVE [None]
